FAERS Safety Report 7394880-8 (Version None)
Quarter: 2011Q2

REPORT INFORMATION
  Report Type: 
  Country: None (occurrence: None)
  Receive Date: 20110405
  Receipt Date: 20110329
  Transmission Date: 20111010
  Serious: Yes (Hospitalization)
  Sender: FDA-Public Use
  Company Number: A0921330A

PATIENT
  Age: 52 Year
  Sex: Male
  Weight: 96 kg

DRUGS (3)
  1. FLOLAN [Suspect]
     Route: 042
     Dates: start: 20110405
  2. NONE [Concomitant]
  3. FLOLAN [Suspect]
     Dosage: 43NGKM UNKNOWN
     Route: 042
     Dates: start: 20010405

REACTIONS (1)
  - DEVICE RELATED INFECTION [None]
